FAERS Safety Report 9820584 (Version 1)
Quarter: 2013Q4

REPORT INFORMATION
  Report Type: Spontaneous
  Country: US (occurrence: None)
  Receive Date: 20131028
  Receipt Date: 20131028
  Transmission Date: 20140711
  Serious: No
  Sender: FDA-Public Use
  Company Number: 2013US002260

PATIENT
  Age: 77 Year
  Sex: Male
  Weight: 56 kg

DRUGS (19)
  1. ICLUSIG [Suspect]
     Indication: ACUTE LYMPHOCYTIC LEUKAEMIA
     Route: 048
     Dates: start: 20130801
  2. PRECOSE (ACARBOSE) [Concomitant]
  3. LASIX (FUROSEMIDE) [Concomitant]
  4. KCL (KCL) [Concomitant]
  5. GLYBURIDE (GLYBURIDE) [Concomitant]
  6. METOPROLOL (METOPROLOL) [Concomitant]
  7. NEXIUM I.V. [Concomitant]
  8. PROBIOTIC (BIFIDOBACTERIUM LACTIS) [Concomitant]
  9. FLOMAX (MORNIFLUMATE) [Concomitant]
  10. SINGULAIR [Concomitant]
  11. VALCYTE (VALGANCICLOVIR HYDROCHLORIDE) [Concomitant]
  12. IGG (IMMUNOGLOBULIN G HUMAN) [Concomitant]
  13. GLUCOSAMINE AND CHONDROITIN (CHONDROITIN SULFATE SODIUM, GLUCOSAMINE) [Concomitant]
  14. CENTRUM SILVER (ASCORBIC ACID, CALCIUM, MINERALS NOS, RETINOL, TOCOPHERYL ACETATE, VITAMIN B NOS, VITAMINS NOS, ZINC) [Concomitant]
  15. LIPITOR (ATORVASTATIN CALCIUM) [Concomitant]
  16. VITAMIN D2 (VITAMIN D2) [Concomitant]
  17. MIRAPEX ER (PRAMIPEXOLE DIHYDROCHLORIDE) [Concomitant]
  18. VELCADE (BORTEZOMIB) [Concomitant]
  19. TOLNAFTATE (TOLNAFTATE) [Concomitant]

REACTIONS (1)
  - No adverse event [None]
